FAERS Safety Report 6530674-0 (Version None)
Quarter: 2010Q1

REPORT INFORMATION
  Report Type: 
  Country: None (occurrence: None)
  Receive Date: 20100108
  Receipt Date: 20081113
  Transmission Date: 20100710
  Serious: No
  Sender: FDA-Public Use
  Company Number: A0756458A

PATIENT
  Age: 65 Year
  Sex: Female

DRUGS (6)
  1. LOVAZA [Suspect]
     Dosage: 2CAP PER DAY
     Route: 048
     Dates: start: 20081104
  2. LOVASTATIN [Concomitant]
  3. ATENOLOL [Concomitant]
  4. MELOXICAM [Concomitant]
  5. NIFEDIPINE [Concomitant]
  6. ASPIRIN [Concomitant]

REACTIONS (3)
  - MIDDLE INSOMNIA [None]
  - MUSCLE SPASMS [None]
  - PAIN [None]
